FAERS Safety Report 5232637-4 (Version None)
Quarter: 2007Q1

REPORT INFORMATION
  Report Type: 
  Country: None (occurrence: None)
  Receive Date: 20070207
  Receipt Date: 20070127
  Transmission Date: 20070707
  Serious: Yes (Other)
  Sender: FDA-Public Use
  Company Number: PR-ROCHE-480229

PATIENT
  Age: 53 Year
  Sex: Female
  Weight: 68 kg

DRUGS (6)
  1. BONIVA [Suspect]
     Indication: OSTEOPOROSIS
     Route: 048
     Dates: start: 20050615
  2. NEURONTIN [Concomitant]
     Indication: SACROILIITIS
     Route: 048
  3. PLAVIX [Concomitant]
     Route: 048
     Dates: start: 20040615
  4. PREMARIN [Concomitant]
     Indication: MENOPAUSE
  5. ACIPHEX [Concomitant]
     Indication: GASTRIC DISORDER
     Route: 048
  6. HUMIRA [Concomitant]
     Indication: SACROILIITIS

REACTIONS (2)
  - GASTRIC DISORDER [None]
  - SACROILIITIS [None]
